FAERS Safety Report 5090800-X (Version None)
Quarter: 2006Q3

REPORT INFORMATION
  Report Type: 
  Country: None (occurrence: None)
  Receive Date: 20060823
  Receipt Date: 20060814
  Transmission Date: 20061208
  Serious: Yes (Other)
  Sender: FDA-Public Use
  Company Number: 2006-08-0711

PATIENT
  Age: 47 Year
  Sex: Male
  Weight: 89 kg

DRUGS (3)
  1. LORATADINE [Suspect]
     Indication: SEASONAL ALLERGY
     Dosage: 10 MG QD ORAL
     Route: 048
     Dates: start: 20060622, end: 20060624
  2. EAREX [Concomitant]
  3. IBUPROFEN [Concomitant]

REACTIONS (1)
  - GRAND MAL CONVULSION [None]
